FAERS Safety Report 13702402 (Version 1)
Quarter: 2017Q2

REPORT INFORMATION
  Report Type: Report from Study
  Country: None (occurrence: US)
  Receive Date: 20170629
  Receipt Date: 20170629
  Transmission Date: 20170830
  Serious: Yes (Hospitalization)
  Sender: FDA-Public Use
  Company Number: US-IPSEN BIOPHARMACEUTICALS, INC.-2011-2515

PATIENT
  Age: 11 Year
  Sex: Female
  Weight: 19.3 kg

DRUGS (2)
  1. INCRELEX [Suspect]
     Active Substance: MECASERMIN
     Indication: GROWTH HORMONE DEFICIENCY
     Route: 058
     Dates: start: 201506
  2. INCRELEX [Suspect]
     Active Substance: MECASERMIN
     Route: 058
     Dates: start: 20110720, end: 20110722

REACTIONS (3)
  - Hypoglycaemia [Not Recovered/Not Resolved]
  - Drug prescribing error [Unknown]
  - Generalised tonic-clonic seizure [None]

NARRATIVE: CASE EVENT DATE: 20110722
